FAERS Safety Report 16092932 (Version 2)
Quarter: 2019Q1

REPORT INFORMATION
  Report Type: Other
  Country: AT (occurrence: AT)
  Receive Date: 20190320
  Receipt Date: 20190328
  Transmission Date: 20190418
  Serious: Yes (Hospitalization)
  Sender: FDA-Public Use
  Company Number: AT-CELLTRION INC.-2019AT017636

PATIENT

DRUGS (19)
  1. XGEVA [Concomitant]
     Active Substance: DENOSUMAB
     Dosage: UNK, (ONGOING = CHECKED)
     Route: 065
     Dates: start: 20181012
  2. YOMOGI (SACCHAROMYCES BOULARDII) [Concomitant]
     Indication: ANAEMIA
     Dosage: UNK (ONGOING = NOT CHECKED)
     Route: 065
     Dates: start: 20190103, end: 20190115
  3. PANTOLOC [Suspect]
     Active Substance: PANTOPRAZOLE SODIUM
     Dosage: UNK, ONGOING = CHECKED
     Route: 065
     Dates: start: 20190221
  4. PERTUZUMAB. [Suspect]
     Active Substance: PERTUZUMAB
     Indication: HER-2 POSITIVE BREAST CANCER
     Dosage: 840 MG, EVERY 3 WEEK (MOST RECENT DOSE PRIOR TO THE EVENT: 21/SEP/2018)
     Route: 042
     Dates: start: 20180810
  5. AMLODIPIN [Concomitant]
     Active Substance: AMLODIPINE BESYLATE
     Dosage: UNK (ONGOING = CHECKED)
     Route: 065
     Dates: start: 20181215
  6. FEMARA [Suspect]
     Active Substance: LETROZOLE
     Indication: HER-2 POSITIVE BREAST CANCER
     Dosage: 2.5 MG, QD (OD-ONCE DAILY)
     Route: 048
     Dates: start: 20181029
  7. ACEMIN (AUSTRIA) [Concomitant]
     Dosage: ONGOING = CHECKED
     Route: 065
  8. PERTUZUMAB. [Suspect]
     Active Substance: PERTUZUMAB
     Dosage: UNK
     Dates: start: 20180921
  9. ULSAL [Concomitant]
     Active Substance: RANITIDINE HYDROCHLORIDE
     Dosage: UNK
     Route: 065
     Dates: start: 20180810, end: 20181019
  10. FENAKUT [Concomitant]
     Dosage: UNK
     Route: 065
     Dates: start: 20180810, end: 20181019
  11. KYTRIL [Concomitant]
     Active Substance: GRANISETRON HYDROCHLORIDE
     Dosage: UNK
     Route: 065
     Dates: start: 20180810, end: 20181019
  12. AKTIFERRIN (AUSTRIA) [Concomitant]
     Indication: ANAEMIA
     Dosage: UNK (REPORTED AS AKTIFERRIN CP) , (ONGOING = NOT CHECKED)
     Route: 065
     Dates: start: 20190103, end: 20190201
  13. CIPRALEX [Concomitant]
     Active Substance: ESCITALOPRAM OXALATE
     Dosage: UNK (ONGOING = CHECKED)
     Route: 065
     Dates: start: 20190115
  14. DEXABENE [Concomitant]
     Dosage: UNK
     Route: 065
     Dates: start: 20180810, end: 20181019
  15. PASPERTIN  (AUSTRIA) [Concomitant]
     Indication: NAUSEA
     Dosage: UNK (ONGOING = CHECKED)
     Route: 065
     Dates: start: 20181029
  16. METOPROLOL. [Concomitant]
     Active Substance: METOPROLOL
     Dosage: UNK
     Route: 065
  17. KALIORAL (AUSTRIA) [Concomitant]
     Indication: ANAEMIA
     Dosage: UNK (ONGOING = NOT CHECKED)
     Route: 065
     Dates: start: 20190103, end: 20190115
  18. TRASTUZUMAB (UNKNOWN) [Suspect]
     Active Substance: TRASTUZUMAB
     Indication: HER-2 POSITIVE BREAST CANCER
     Dosage: 464 MG, EVERY 3 WEEK / MOST RECENT DOSE PRIOR TO THE EVENT: 21/SEP/2018
     Route: 042
     Dates: start: 20180810, end: 20180810
  19. THROMBO ASS [Concomitant]
     Active Substance: ASPIRIN
     Dosage: UNK
     Route: 065

REACTIONS (8)
  - Fatigue [Recovered/Resolved]
  - Epistaxis [Recovered/Resolved]
  - Decreased appetite [Not Recovered/Not Resolved]
  - Anaemia [Not Recovered/Not Resolved]
  - Abdominal pain [Not Recovered/Not Resolved]
  - Diarrhoea [Recovered/Resolved]
  - Lymphoedema [Not Recovered/Not Resolved]
  - Nausea [Recovered/Resolved]

NARRATIVE: CASE EVENT DATE: 20180928
